FAERS Safety Report 17957622 (Version 1)
Quarter: 2020Q2

REPORT INFORMATION
  Report Type: Spontaneous
  Country: GB (occurrence: GB)
  Receive Date: 20200629
  Receipt Date: 20200629
  Transmission Date: 20200714
  Serious: Yes (Death)
  Sender: FDA-Public Use
  Company Number: GB-NOVOPROD-735218

PATIENT
  Age: 64 Year
  Sex: Female

DRUGS (1)
  1. NOVOMIX 30 [Suspect]
     Active Substance: INSULIN ASPART
     Indication: DIABETES MELLITUS
     Dosage: UNK
     Route: 065

REACTIONS (2)
  - Death [Fatal]
  - Diabetes mellitus inadequate control [Unknown]
